FAERS Safety Report 8454559-8 (Version None)
Quarter: 2012Q2

REPORT INFORMATION
  Report Type: 
  Country: None (occurrence: None)
  Receive Date: 20120621
  Receipt Date: 20120618
  Transmission Date: 20120825
  Serious: No
  Sender: FDA-Public Use
  Company Number: US-BIOGENIDEC-2012BI021440

PATIENT
  Sex: Male

DRUGS (2)
  1. TYSABRI [Suspect]
     Indication: MULTIPLE SCLEROSIS
     Route: 042
  2. TYSABRI [Suspect]
     Route: 042
     Dates: start: 20120413

REACTIONS (7)
  - DEPRESSION [None]
  - DEPRESSED MOOD [None]
  - MUSCULOSKELETAL DISORDER [None]
  - MOOD SWINGS [None]
  - MAJOR DEPRESSION [None]
  - GAIT DISTURBANCE [None]
  - ASTHENIA [None]
